FAERS Safety Report 16475451 (Version 1)
Quarter: 2019Q2

REPORT INFORMATION
  Report Type: Spontaneous
  Country: JP (occurrence: JP)
  Receive Date: 20190625
  Receipt Date: 20190625
  Transmission Date: 20190711
  Serious: Yes (Death, Other)
  Sender: FDA-Public Use
  Company Number: JP-SEATTLE GENETICS-2019SGN02189

PATIENT
  Age: 63 Year
  Sex: Male

DRUGS (1)
  1. ADCETRIS [Suspect]
     Active Substance: BRENTUXIMAB VEDOTIN
     Indication: PERIPHERAL T-CELL LYMPHOMA UNSPECIFIED RECURRENT
     Dosage: 1.8 MILLIGRAM/KILOGRAM
     Route: 041
     Dates: start: 20190522, end: 20190522

REACTIONS (3)
  - Off label use [Unknown]
  - Condition aggravated [Fatal]
  - Peripheral T-cell lymphoma unspecified recurrent [Fatal]

NARRATIVE: CASE EVENT DATE: 20190522
